FAERS Safety Report 20652519 (Version 1)
Quarter: 2022Q1

REPORT INFORMATION
  Report Type: Other
  Country: CA (occurrence: CA)
  Receive Date: 20220330
  Receipt Date: 20220330
  Transmission Date: 20220423
  Serious: Yes (Life-Threatening, Hospitalization, Other)
  Sender: FDA-Public Use
  Company Number: CA-APOTEX-2022AP005230

PATIENT
  Age: 18 Year
  Sex: Female
  Weight: 48.526 kg

DRUGS (1)
  1. PAROXETINE [Suspect]
     Active Substance: PAROXETINE
     Indication: Depression
     Dosage: 20 MILLIGRAM, QD
     Route: 048

REACTIONS (3)
  - Suicide attempt [Recovered/Resolved]
  - Depression [Recovered/Resolved]
  - Hallucination, auditory [Recovered/Resolved]
